FAERS Safety Report 8557909-7 (Version None)
Quarter: 2012Q3

REPORT INFORMATION
  Report Type: 
  Country: None (occurrence: None)
  Receive Date: 20120720
  Receipt Date: 20120706
  Transmission Date: 20120928
  Serious: Yes (Hospitalization)
  Sender: FDA-Public Use
  Company Number: TPA2012A04362

PATIENT
  Age: 62 Year
  Sex: Female
  Weight: 87.7 kg

DRUGS (4)
  1. CALCIUM [Concomitant]
  2. DEXLANSOPRAZOLE [Suspect]
     Indication: PROPHYLAXIS
     Dosage: 60 MG, 1 IN 1 D, ORAL
     Route: 048
     Dates: start: 20120214
  3. CETIRIZINE [Concomitant]
  4. VITAMIN D [Concomitant]

REACTIONS (1)
  - NEPHROLITHIASIS [None]
